FAERS Safety Report 19896935 (Version 3)
Quarter: 2022Q1

REPORT INFORMATION
  Report Type: Spontaneous
  Country: DE (occurrence: DE)
  Receive Date: 20210930
  Receipt Date: 20220318
  Transmission Date: 20220424
  Serious: Yes (Hospitalization, Other)
  Sender: FDA-Public Use
  Company Number: DE-GLAXOSMITHKLINE-DE2021EME193040

PATIENT
  Age: 70 Year
  Sex: Female
  Weight: 82 kg

DRUGS (5)
  1. LAMOTRIGINE [Suspect]
     Active Substance: LAMOTRIGINE
     Indication: Product used for unknown indication
     Dosage: 400 MILLIGRAM, ONCE A DAY
     Route: 065
  2. LAMOTRIGINE [Suspect]
     Active Substance: LAMOTRIGINE
     Dosage: 600 MG, QD
     Route: 065
  3. LAMOTRIGINE [Suspect]
     Active Substance: LAMOTRIGINE
     Dosage: 200 MILLIGRAM, ONCE A DAY(100 MG, BID)
     Route: 065
     Dates: start: 20200601
  4. LAMOTRIGINE [Suspect]
     Active Substance: LAMOTRIGINE
     Dosage: 100 MILLIGRAM
     Route: 065
  5. SEMAGLUTIDE [Suspect]
     Active Substance: SEMAGLUTIDE
     Indication: Obesity
     Dosage: UNK
     Route: 065
     Dates: start: 20200528

REACTIONS (6)
  - Vertigo [Recovered/Resolved]
  - Gait disturbance [Unknown]
  - Overdose [Recovered/Resolved]
  - Hypertensive crisis [Unknown]
  - Deafness [Unknown]
  - Fall [Unknown]

NARRATIVE: CASE EVENT DATE: 20200601
